FAERS Safety Report 23448415 (Version 1)
Quarter: 2024Q1

REPORT INFORMATION
  Report Type: Spontaneous
  Country: GB (occurrence: GB)
  Receive Date: 20240127
  Receipt Date: 20240127
  Transmission Date: 20240409
  Serious: Yes (Hospitalization)
  Sender: FDA-Public Use
  Company Number: GB-CELLTRION INC.-2024GB001850

PATIENT

DRUGS (1)
  1. YUFLYMA [Suspect]
     Active Substance: ADALIMUMAB-AATY
     Indication: Rheumatoid arthritis
     Dosage: 40MG FOR INJECTION PEN PK2
     Route: 058
     Dates: start: 202310

REACTIONS (3)
  - Bladder disorder [Unknown]
  - Renal disorder [Unknown]
  - Unevaluable event [Unknown]
